FAERS Safety Report 9233554 (Version 2)
Quarter: 2013Q4

REPORT INFORMATION
  Report Type: Spontaneous
  Country: US (occurrence: US)
  Receive Date: 20130416
  Receipt Date: 20131226
  Transmission Date: 20140711
  Serious: Yes (Life-Threatening, Hospitalization, Disabling)
  Sender: FDA-Public Use
  Company Number: US-BAYER-2013-047332

PATIENT
  Age: 36 Year
  Sex: Female
  Weight: 74.83 kg

DRUGS (13)
  1. YAZ [Suspect]
     Indication: CONTRACEPTION
     Dosage: UNK
     Dates: start: 201103, end: 20120417
  2. BEYAZ [Suspect]
     Indication: CONTRACEPTION
     Dosage: UNK
     Dates: start: 201105, end: 201204
  3. BEYAZ [Suspect]
     Indication: ACNE
  4. ADDERALL [Concomitant]
     Dosage: 10 MG, UNK
     Route: 048
  5. ZINC [Concomitant]
  6. FISH OIL [Concomitant]
  7. AVELOX [Concomitant]
     Dosage: 400 MG, QD
     Route: 048
  8. DEXILANT [Concomitant]
     Dosage: 60 MG, DAILY
     Route: 048
  9. MAGNESIUM OXIDE [Concomitant]
  10. VITAMIN D [Concomitant]
  11. PROPRANOLOL [Concomitant]
     Dosage: 10 MG, BID
     Route: 048
  12. VACCIN D.T. TAB [Concomitant]
  13. TRAMADOL [Concomitant]

REACTIONS (8)
  - Pulmonary embolism [None]
  - Injury [None]
  - Pain [None]
  - General physical health deterioration [None]
  - Emotional distress [None]
  - Anxiety [None]
  - Anhedonia [None]
  - Pain [None]
